FAERS Safety Report 4772511-0 (Version None)
Quarter: 2005Q3

REPORT INFORMATION
  Report Type: 
  Country: None (occurrence: None)
  Receive Date: 20050919
  Receipt Date: 20050919
  Transmission Date: 20060218
  Serious: Yes (Other)
  Sender: FDA-Public Use
  Company Number: None

PATIENT
  Age: 85 Year
  Sex: Male
  Weight: 75.7507 kg

DRUGS (7)
  1. FORMOTEROL INHALED 12MCG NORVARTIS PHARMACEUTICALS [Suspect]
     Indication: CHRONIC OBSTRUCTIVE PULMONARY DISEASE
     Dosage: 1 CAPSULE-12MG EVERY 12 HOURS INHAL
     Route: 055
     Dates: start: 20050307, end: 20050912
  2. FLUNISOLIDE [Concomitant]
  3. LISINOPRIL [Concomitant]
  4. METOPROLOL [Concomitant]
  5. TERAZOSIN HCL [Concomitant]
  6. FUROSEMIDE [Concomitant]
  7. GABAPENTIN [Concomitant]

REACTIONS (3)
  - BURNING SENSATION [None]
  - ORAL MUCOSAL BLISTERING [None]
  - STOMATITIS [None]
